FAERS Safety Report 9219001 (Version 2)
Quarter: 2013Q2

REPORT INFORMATION
  Report Type: Report from Study
  Country: US (occurrence: US)
  Receive Date: 20130409
  Receipt Date: 20130426
  Transmission Date: 20140414
  Serious: Yes (Death, Hospitalization, Disabling)
  Sender: FDA-Public Use
  Company Number: US-NAPPMUNDI-USA-2013-0100614

PATIENT
  Sex: Male

DRUGS (1)
  1. OXYCONTIN (NDA 22-272) [Suspect]
     Indication: HEPATIC FAILURE
     Dosage: 320 MG, Q12H
     Route: 048

REACTIONS (3)
  - Chronic hepatic failure [Fatal]
  - Gangrene [Unknown]
  - Foot amputation [Unknown]
